FAERS Safety Report 9078336 (Version 1)
Quarter: 2013Q1

REPORT INFORMATION
  Report Type: Report from Study
  Country: US (occurrence: US)
  Receive Date: 20130130
  Receipt Date: 20130130
  Transmission Date: 20140127
  Serious: No
  Sender: FDA-Public Use
  Company Number: US-ABBOTT-12P-163-0931172-00

PATIENT
  Sex: Male

DRUGS (1)
  1. HUMIRA [Suspect]
     Indication: CROHN^S DISEASE
     Route: 058
     Dates: start: 20120417, end: 20120426

REACTIONS (7)
  - Fatigue [Unknown]
  - Vision blurred [Unknown]
  - Pain [Unknown]
  - Chills [Unknown]
  - Vitreous floaters [Unknown]
  - Hypoaesthesia [Unknown]
  - Arthralgia [Unknown]
